FAERS Safety Report 16912041 (Version 1)
Quarter: 2019Q4

REPORT INFORMATION
  Report Type: Spontaneous
  Country: CA (occurrence: CA)
  Receive Date: 20191014
  Receipt Date: 20191014
  Transmission Date: 20200122
  Serious: Yes (Life-Threatening)
  Sender: FDA-Public Use
  Company Number: CA-AUROBINDO-AUR-APL-2019-065914

PATIENT
  Age: 50 Year
  Sex: Female
  Weight: 57.6 kg

DRUGS (2)
  1. QUETIAPINE FILM-COATED TABLET [Suspect]
     Active Substance: QUETIAPINE
     Indication: SLEEP DISORDER THERAPY
     Dosage: 25.0 MILLIGRAM, TWO TIMES A DAY
     Route: 048
  2. TRAZODONE [Concomitant]
     Active Substance: TRAZODONE HYDROCHLORIDE
     Indication: PRODUCT USED FOR UNKNOWN INDICATION
     Dosage: UNK
     Route: 065

REACTIONS (2)
  - Fear [Recovered/Resolved]
  - Sense of a foreshortened future [Recovered/Resolved]
